FAERS Safety Report 8379586-0 (Version None)
Quarter: 2012Q1

REPORT INFORMATION
  Report Type: 
  Country: None (occurrence: None)
  Receive Date: 20120323
  Receipt Date: 20111104
  Transmission Date: 20120608
  Serious: Yes (Other)
  Sender: FDA-Public Use
  Company Number: 163-21880-11040849

PATIENT
  Age: 68 Year
  Sex: Male
  Weight: 105.7 kg

DRUGS (13)
  1. ALLOPURINOL [Concomitant]
  2. HYDROCHLOROTHIAZIDE [Concomitant]
  3. REVLIMID [Suspect]
     Indication: MULTIPLE MYELOMA
     Dosage: SEE IMAGE
     Route: 048
     Dates: start: 20081101
  4. REVLIMID [Suspect]
     Indication: MULTIPLE MYELOMA
     Dosage: SEE IMAGE
     Route: 048
     Dates: start: 20101201
  5. REVLIMID [Suspect]
     Indication: MULTIPLE MYELOMA
     Dosage: SEE IMAGE
     Route: 048
     Dates: start: 20080203
  6. REVLIMID [Suspect]
     Indication: MULTIPLE MYELOMA
     Dosage: SEE IMAGE
     Route: 048
     Dates: start: 20100101
  7. VITAMIN B12 (CYANOCOBALAMIN)(UNKNOWN) [Concomitant]
  8. METOPROLOL TARTRATE [Concomitant]
  9. CALCIUM (CALCIUM)(UNKNOWN) [Concomitant]
  10. CYMBALTA [Concomitant]
  11. AREDIA [Concomitant]
  12. CALCIUM [Concomitant]
  13. VITAMIN D (ERGOCALCIFEROL)(UNKNOWN) [Concomitant]

REACTIONS (3)
  - RESPIRATORY TRACT INFECTION [None]
  - DEEP VEIN THROMBOSIS [None]
  - PNEUMONIA [None]
